FAERS Safety Report 6842268-8 (Version None)
Quarter: 2010Q3

REPORT INFORMATION
  Report Type: 
  Country: None (occurrence: None)
  Receive Date: 20100714
  Receipt Date: 20070720
  Transmission Date: 20110219
  Serious: No
  Sender: FDA-Public Use
  Company Number: US-PFIZER INC-2007062337

PATIENT
  Sex: Female
  Weight: 50 kg

DRUGS (3)
  1. CHANTIX [Suspect]
     Indication: SMOKING CESSATION THERAPY
     Route: 048
     Dates: start: 20070501, end: 20070501
  2. VISTARIL [Suspect]
     Route: 042
  3. MONTELUKAST SODIUM [Concomitant]
     Indication: HYPERSENSITIVITY

REACTIONS (2)
  - URTICARIA [None]
  - VIRAL INFECTION [None]
